FAERS Safety Report 7250756-8 (Version None)
Quarter: 2011Q1

REPORT INFORMATION
  Report Type: 
  Country: None (occurrence: None)
  Receive Date: 20110119
  Receipt Date: 20110104
  Transmission Date: 20110831
  Serious: Yes (Death)
  Sender: FDA-Public Use
  Company Number: 020351

PATIENT
  Sex: Female

DRUGS (6)
  1. VIMPAT [Suspect]
     Indication: EPILEPSY
     Dosage: 50 MG QD ORAL, 50 MG BID ORAL, 150 MG, 50 MG-0-100 MG ORAL, 100 MG BID, 100 MG-0-100 MG ORAL
     Route: 048
     Dates: start: 20100918, end: 20100919
  2. VIMPAT [Suspect]
     Indication: EPILEPSY
     Dosage: 50 MG QD ORAL, 50 MG BID ORAL, 150 MG, 50 MG-0-100 MG ORAL, 100 MG BID, 100 MG-0-100 MG ORAL
     Route: 048
     Dates: start: 20100920, end: 20100926
  3. VIMPAT [Suspect]
     Indication: EPILEPSY
     Dosage: 50 MG QD ORAL, 50 MG BID ORAL, 150 MG, 50 MG-0-100 MG ORAL, 100 MG BID, 100 MG-0-100 MG ORAL
     Route: 048
     Dates: start: 20100927
  4. VIMPAT [Suspect]
     Indication: EPILEPSY
     Dosage: 50 MG QD ORAL, 50 MG BID ORAL, 150 MG, 50 MG-0-100 MG ORAL, 100 MG BID, 100 MG-0-100 MG ORAL
     Route: 048
     Dates: start: 20100916, end: 20100917
  5. MYSOLINE [Suspect]
     Indication: EPILEPSY
     Dosage: 500 MG ORAL
     Route: 048
  6. FRISIUM (FRISIUM) (NOT SPECIFIED) [Suspect]
     Indication: EPILEPSY
     Dosage: 5 MG TID ORAL
     Route: 048

REACTIONS (2)
  - CARDIAC FAILURE [None]
  - MYOCARDITIS [None]
